FAERS Safety Report 13746339 (Version 1)
Quarter: 2017Q3

REPORT INFORMATION
  Report Type: Report from Study
  Country: None (occurrence: US)
  Receive Date: 20170712
  Receipt Date: 20170712
  Transmission Date: 20171127
  Serious: Yes (Other)
  Sender: FDA-Public Use
  Company Number: US-IPSEN BIOPHARMACEUTICALS, INC.-2012-8224

PATIENT
  Age: 25 Year
  Sex: Female
  Weight: 85.27 kg

DRUGS (2)
  1. PRAVASTATIN. [Concomitant]
     Active Substance: PRAVASTATIN
     Indication: PRODUCT USED FOR UNKNOWN INDICATION
     Route: 065
  2. SOMATULINE DEPOT [Suspect]
     Active Substance: LANREOTIDE ACETATE
     Indication: ACROMEGALY
     Dosage: 120 MG
     Route: 058
     Dates: start: 20110902

REACTIONS (8)
  - Road traffic accident [Recovered/Resolved with Sequelae]
  - Intervertebral disc protrusion [Recovering/Resolving]
  - Paraesthesia [Recovering/Resolving]
  - Injection site pain [None]
  - Injection site pruritus [None]
  - Back pain [Recovering/Resolving]
  - Dizziness [None]
  - Injection site erythema [None]

NARRATIVE: CASE EVENT DATE: 201205
